FAERS Safety Report 5282763-9 (Version None)
Quarter: 2007Q2

REPORT INFORMATION
  Report Type: 
  Country: None (occurrence: None)
  Receive Date: 20070402
  Receipt Date: 20070329
  Transmission Date: 20071010
  Serious: Yes (Other)
  Sender: FDA-Public Use
  Company Number: GB-SP-2007-00988

PATIENT
  Sex: Female

DRUGS (1)
  1. IMMUCYST [Suspect]
     Route: 043

REACTIONS (1)
  - DYSURIA [None]
